FAERS Safety Report 5734326-6 (Version None)
Quarter: 2008Q2

REPORT INFORMATION
  Report Type: 
  Country: None (occurrence: None)
  Receive Date: 20080512
  Receipt Date: 20080502
  Transmission Date: 20081010
  Serious: Yes (Hospitalization)
  Sender: FDA-Public Use
  Company Number: US-JNJFOC-20080500757

PATIENT
  Sex: Female
  Weight: 65.32 kg

DRUGS (6)
  1. REMICADE [Suspect]
     Route: 042
  2. REMICADE [Suspect]
     Route: 042
  3. REMICADE [Suspect]
     Indication: CROHN'S DISEASE
     Dosage: 3-4 MONTHS
     Route: 042
  4. HUMIRA [Suspect]
     Indication: DRUG USE FOR UNKNOWN INDICATION
  5. SPIRO [Concomitant]
     Indication: CROHN'S DISEASE
  6. FLAGYL [Concomitant]
     Indication: CROHN'S DISEASE

REACTIONS (4)
  - CROHN'S DISEASE [None]
  - INTESTINAL FISTULA [None]
  - NONSPECIFIC REACTION [None]
  - POOR VENOUS ACCESS [None]
